FAERS Safety Report 24797633 (Version 3)
Quarter: 2025Q1

REPORT INFORMATION
  Report Type: Spontaneous
  Country: GB (occurrence: GB)
  Receive Date: 20250102
  Receipt Date: 20250115
  Transmission Date: 20250409
  Serious: Yes (Other)
  Sender: SANDOZ
  Company Number: GB-SUN PHARMACEUTICAL INDUSTRIES LTD-2024RR-486507

PATIENT
  Sex: Female

DRUGS (1)
  1. ESTRADIOL [Suspect]
     Active Substance: ESTRADIOL
     Indication: Vulvovaginal dryness
     Dosage: 10 MILLIGRAM, WEEKLY, MONDAY AND THURSDAY MORNING
     Route: 065

REACTIONS (2)
  - Vulvovaginal injury [Recovered/Resolved]
  - Device breakage [Recovered/Resolved]

NARRATIVE: CASE EVENT DATE: 20241216
